FAERS Safety Report 11265877 (Version 1)
Quarter: 2015Q3

REPORT INFORMATION
  Report Type: Spontaneous
  Country: CH (occurrence: CH)
  Receive Date: 20150713
  Receipt Date: 20150713
  Transmission Date: 20151125
  Serious: Yes (Other)
  Sender: FDA-Public Use
  Company Number: CH-NOVOPROD-455378

PATIENT
  Age: 15 Year
  Sex: Male

DRUGS (3)
  1. PREDNISONE. [Concomitant]
     Active Substance: PREDNISONE
     Indication: ASPERGILLUS INFECTION
     Dosage: 2 MG/KG, QD
     Route: 065
     Dates: start: 20150409
  2. NORDITROPIN [Suspect]
     Active Substance: SOMATROPIN
     Indication: GROWTH HORMONE DEFICIENCY
     Dosage: UNK
     Route: 058
     Dates: start: 20120430
  3. INSULIN [Concomitant]
     Active Substance: INSULIN NOS
     Indication: CYSTIC FIBROSIS RELATED DIABETES
     Dosage: UNK
     Route: 065
     Dates: start: 20130913

REACTIONS (2)
  - Glomerulonephritis [Unknown]
  - Haematuria [Unknown]
